FAERS Safety Report 12216092 (Version 1)
Quarter: 2016Q1

REPORT INFORMATION
  Report Type: Spontaneous
  Country: JP (occurrence: JP)
  Receive Date: 20160329
  Receipt Date: 20160329
  Transmission Date: 20160526
  Serious: Yes (Hospitalization, Disabling)
  Sender: FDA-Public Use
  Company Number: JP-009507513-1512JPN004339

PATIENT
  Age: 66 Year
  Sex: Female
  Weight: 47 kg

DRUGS (7)
  1. SOVALDI [Suspect]
     Active Substance: SOFOSBUVIR
     Dosage: 400 MG, QD
     Route: 048
     Dates: start: 20151127
  2. REBETOL [Suspect]
     Active Substance: RIBAVIRIN
     Indication: CHRONIC HEPATITIS C
     Dosage: 600 MG, QD (DIVIDED DOSE FREQUENCY UNKNOWN)
     Route: 048
     Dates: start: 20150927
  3. FAMOTIDINE. [Concomitant]
     Active Substance: FAMOTIDINE
     Dosage: 20 MG, QD (DIVIDED DOSE FREQUENCY UNKNOWN)
     Route: 048
  4. LYRICA [Concomitant]
     Active Substance: PREGABALIN
     Dosage: 150 MG, QD (DIVIDED DOSE FREQUENCY UNKNOWN)
     Route: 048
  5. REBETOL [Suspect]
     Active Substance: RIBAVIRIN
     Dosage: 600 MG, QD (DIVIDED DOSE FREQUENCY UNKNOWN)
     Route: 048
     Dates: start: 20151127
  6. PRANLUKAST [Concomitant]
     Active Substance: PRANLUKAST
     Dosage: 450 MG, QD (DIVIDED DOSE FREQUENCY UNKNOWN)
     Route: 048
  7. SOVALDI [Suspect]
     Active Substance: SOFOSBUVIR
     Indication: CHRONIC HEPATITIS C
     Dosage: 400 MG, QD
     Route: 048
     Dates: start: 20150927

REACTIONS (7)
  - Back pain [Unknown]
  - Malaise [Recovered/Resolved]
  - Malaise [Recovered/Resolved]
  - Respiratory symptom [Unknown]
  - Pain in extremity [Unknown]
  - Myalgia [Recovered/Resolved]
  - Pneumonia [Recovered/Resolved]

NARRATIVE: CASE EVENT DATE: 20150928
